FAERS Safety Report 15429590 (Version 1)
Quarter: 2018Q3

REPORT INFORMATION
  Report Type: Spontaneous
  Country: IE (occurrence: IE)
  Receive Date: 20180926
  Receipt Date: 20180926
  Transmission Date: 20181010
  Serious: Yes (Hospitalization)
  Sender: FDA-Public Use
  Company Number: IE-MYLANLABS-2017M1047505

PATIENT
  Age: 60 Year
  Sex: Female

DRUGS (1)
  1. CLOZARIL [Suspect]
     Active Substance: CLOZAPINE
     Indication: SCHIZOPHRENIA
     Route: 048
     Dates: start: 20130902

REACTIONS (6)
  - Anaemia [Not Recovered/Not Resolved]
  - Hospitalisation [Unknown]
  - Neutrophil count increased [Unknown]
  - White blood cell count decreased [Unknown]
  - White blood cell count increased [Unknown]
  - Platelet count increased [Recovered/Resolved]

NARRATIVE: CASE EVENT DATE: 20170724
